FAERS Safety Report 7077016-2 (Version None)
Quarter: 2010Q4

REPORT INFORMATION
  Report Type: 
  Country: None (occurrence: None)
  Receive Date: 20101101
  Receipt Date: 20101022
  Transmission Date: 20110411
  Serious: Yes (Life-Threatening, Hospitalization, Other)
  Sender: FDA-Public Use
  Company Number: JP-ROCHE-715637

PATIENT
  Sex: Female
  Weight: 39 kg

DRUGS (37)
  1. BEVACIZUMAB [Suspect]
     Route: 041
     Dates: start: 20100625, end: 20100721
  2. TOCILIZUMAB [Suspect]
     Indication: RHEUMATOID ARTHRITIS
     Route: 041
     Dates: start: 20080807, end: 20080807
  3. TOCILIZUMAB [Suspect]
     Route: 041
     Dates: start: 20080904, end: 20080904
  4. TOCILIZUMAB [Suspect]
     Route: 041
     Dates: start: 20081001, end: 20081001
  5. TOCILIZUMAB [Suspect]
     Route: 041
     Dates: start: 20081029, end: 20081029
  6. TOCILIZUMAB [Suspect]
     Route: 041
     Dates: start: 20081126, end: 20081126
  7. TOCILIZUMAB [Suspect]
     Route: 041
     Dates: start: 20081224, end: 20081224
  8. TOCILIZUMAB [Suspect]
     Route: 041
     Dates: start: 20090121, end: 20090121
  9. TOCILIZUMAB [Suspect]
     Route: 041
     Dates: start: 20090218, end: 20090218
  10. TOCILIZUMAB [Suspect]
     Route: 041
     Dates: start: 20090319, end: 20090319
  11. TOCILIZUMAB [Suspect]
     Route: 041
     Dates: start: 20090415, end: 20090415
  12. TOCILIZUMAB [Suspect]
     Route: 041
     Dates: start: 20090513, end: 20090513
  13. TOCILIZUMAB [Suspect]
     Route: 041
     Dates: start: 20090610, end: 20090610
  14. TOCILIZUMAB [Suspect]
     Route: 041
     Dates: start: 20090708, end: 20090708
  15. TOCILIZUMAB [Suspect]
     Route: 041
     Dates: start: 20090805
  16. PREDNISOLONE [Suspect]
     Route: 048
  17. PREDNISOLONE [Suspect]
     Route: 048
  18. PREDNISOLONE [Suspect]
     Dosage: PREDOHAN
     Route: 048
  19. PROGRAF [Concomitant]
     Route: 048
     Dates: end: 20080810
  20. METALCAPTASE [Concomitant]
     Route: 048
  21. ISCOTIN [Concomitant]
     Route: 048
     Dates: start: 20080630
  22. RIFADIN [Concomitant]
     Route: 048
     Dates: start: 20080630
  23. PYDOXAL [Concomitant]
     Route: 048
  24. TAKEPRON [Concomitant]
     Route: 048
  25. LORCAM [Concomitant]
     Route: 048
  26. PLETAL [Concomitant]
     Route: 048
  27. BONALON [Concomitant]
     Route: 048
  28. VOLTAREN [Concomitant]
     Dosage: FORM:SUPPOSITORY RECTALE
     Route: 054
  29. PURSENNID [Concomitant]
     Route: 048
  30. FLURBIPROFEN [Concomitant]
     Dosage: FORM: TAPE, DOSAGE UNCERTAIN, DRUG:ADOFEED
     Route: 062
  31. CYTOTEC [Concomitant]
     Route: 048
  32. CARBOPLATIN [Concomitant]
     Route: 041
     Dates: start: 20100625, end: 20100721
  33. ALIMTA [Concomitant]
     Route: 041
     Dates: start: 20100625, end: 20100721
  34. EVISTA [Concomitant]
     Route: 048
  35. FERROUS CITRATE [Concomitant]
     Route: 048
  36. KLARICID [Concomitant]
     Route: 048
  37. CRAVIT [Concomitant]
     Route: 048

REACTIONS (17)
  - ATRIAL FIBRILLATION [None]
  - BLOOD UREA INCREASED [None]
  - C-REACTIVE PROTEIN INCREASED [None]
  - CARDIAC FAILURE [None]
  - DIARRHOEA [None]
  - GASTRITIS [None]
  - GASTROINTESTINAL AMYLOIDOSIS [None]
  - ILEAL PERFORATION [None]
  - JOINT SURGERY [None]
  - LUMBAR SPINAL STENOSIS [None]
  - LUNG ADENOCARCINOMA [None]
  - PERITONITIS [None]
  - PLEURAL EFFUSION [None]
  - PYREXIA [None]
  - SMALL INTESTINE ULCER [None]
  - STAPHYLOCOCCAL INFECTION [None]
  - TACHYCARDIA [None]
